FAERS Safety Report 5140759-1 (Version None)
Quarter: 2006Q4

REPORT INFORMATION
  Report Type: 
  Country: None (occurrence: None)
  Receive Date: 20061025
  Receipt Date: 20061016
  Transmission Date: 20070319
  Serious: Yes (Other)
  Sender: FDA-Public Use
  Company Number: GXKR2006NL06518

PATIENT
  Age: 45 Year
  Sex: Female
  Weight: 100 kg

DRUGS (17)
  1. CO-TRIMOXAZOLE (NGX)(SULFAMETHOXAZOLE, TRIMETHOPRIM) TABLET [Suspect]
     Indication: URINARY TRACT INFECTION
     Dosage: 960 MG, BID, ORAL
     Route: 048
     Dates: start: 20060930, end: 20061005
  2. LACTULOSE [Concomitant]
  3. ATENOLOL [Concomitant]
  4. CYMBALTA [Concomitant]
  5. DANTRIUM [Concomitant]
  6. TRIAMCINOLONE ACETONIDE [Concomitant]
  7. CALCICHEW D3 (CALCIUM CARBONATE, COLECALCIFEROL) [Concomitant]
  8. FUROSEMIDE [Concomitant]
  9. OXAZEPAM [Concomitant]
  10. KETOCONAZOLE [Concomitant]
  11. FERO-GRADUMET (FERROUS SULFATE) [Concomitant]
  12. DURAGESIC-100 [Concomitant]
  13. BACLOFEN [Concomitant]
  14. PANTOPRAZOLE SODIUM [Concomitant]
  15. COZAAR [Concomitant]
  16. ACENOCOUMAROL (ACENOCOUMAROL) [Concomitant]
  17. LEVOTHYROXINE SODIUM [Concomitant]

REACTIONS (2)
  - HALLUCINATION [None]
  - PANIC REACTION [None]
